FAERS Safety Report 9060323 (Version 1)
Quarter: 2013Q1

REPORT INFORMATION
  Report Type: Report from Study
  Country: CA (occurrence: CA)
  Receive Date: 20130212
  Receipt Date: 20130212
  Transmission Date: 20140127
  Serious: Yes (Hospitalization)
  Sender: FDA-Public Use
  Company Number: CA-JNJFOC-20130201701

PATIENT
  Age: 34 None
  Sex: Female
  Weight: 60 kg

DRUGS (1)
  1. REMICADE [Suspect]
     Indication: CROHN^S DISEASE
     Route: 042
     Dates: start: 20070909, end: 20120912

REACTIONS (3)
  - Tuberculoma of central nervous system [Unknown]
  - Tuberculosis of genitourinary system [Unknown]
  - Tuberculosis gastrointestinal [Unknown]
